FAERS Safety Report 25814155 (Version 2)
Quarter: 2025Q3

REPORT INFORMATION
  Report Type: Spontaneous
  Country: EU (occurrence: EU)
  Receive Date: 20250917
  Receipt Date: 20250929
  Transmission Date: 20251020
  Serious: Yes (Congenital Anomaly)
  Sender: MYLAN
  Company Number: EU-BEH-2025217517

PATIENT
  Weight: 3.1 kg

DRUGS (10)
  1. PREGABALIN [Suspect]
     Active Substance: PREGABALIN
     Indication: Neuralgia
  2. PREGABALIN [Suspect]
     Active Substance: PREGABALIN
     Indication: Sciatica
  3. FOLIC ACID [Suspect]
     Active Substance: FOLIC ACID
     Indication: Vitamin supplementation
  4. ENOXAPARIN [Suspect]
     Active Substance: ENOXAPARIN
     Indication: Thrombosis prophylaxis
  5. HUMAN RHO(D) IMMUNE GLOBULIN [Suspect]
     Active Substance: HUMAN RHO(D) IMMUNE GLOBULIN
     Indication: Rhesus incompatibility
  6. ALPELISIB [Suspect]
     Active Substance: ALPELISIB
     Indication: PIK3CA related overgrowth spectrum
     Dosage: 250 MILLIGRAM, QD (WAS STOPPED BEFORE PREGNANCY AND THEN LATER RESUMED AT SAME DOSAGE.)
  7. ALPELISIB [Suspect]
     Active Substance: ALPELISIB
     Dosage: 125 MILLIGRAM, QD
  8. ALPELISIB [Suspect]
     Active Substance: ALPELISIB
     Dosage: 175 MILLIGRAM, QD (AFTER SKIN AND VAGINAL DRYNESS DOSE WAS REDUCED; AFTER REBOUND EFFECT DOSE WAS INCREASED))
  9. SIROLIMUS [Concomitant]
     Active Substance: SIROLIMUS
     Indication: Neuralgia
  10. SIROLIMUS [Concomitant]
     Active Substance: SIROLIMUS
     Indication: Sciatica

REACTIONS (2)
  - Polydactyly [Unknown]
  - Foetal exposure during pregnancy [Unknown]
